FAERS Safety Report 5423370-4 (Version None)
Quarter: 2007Q3

REPORT INFORMATION
  Report Type: 
  Country: None (occurrence: None)
  Receive Date: 20070823
  Receipt Date: 20070816
  Transmission Date: 20080115
  Serious: Yes (Hospitalization)
  Sender: FDA-Public Use
  Company Number: US-JNJFOC-20070803634

PATIENT
  Sex: Female

DRUGS (2)
  1. TYLENOL [Suspect]
  2. TYLENOL [Suspect]
     Indication: INTENTIONAL DRUG MISUSE

REACTIONS (3)
  - HEPATIC CIRRHOSIS [None]
  - HEPATITIS [None]
  - INTENTIONAL OVERDOSE [None]
